FAERS Safety Report 17453692 (Version 4)
Quarter: 2021Q1

REPORT INFORMATION
  Report Type: Spontaneous
  Country: DE (occurrence: DE)
  Receive Date: 20200224
  Receipt Date: 20210118
  Transmission Date: 20210419
  Serious: Yes (Other)
  Sender: FDA-Public Use
  Company Number: PHHY2018DE201003

PATIENT
  Sex: Male

DRUGS (25)
  1. VALSARTAN HEXAL 80 MG FILMTABLETTEN [Suspect]
     Active Substance: VALSARTAN
     Indication: HYPERTENSION
     Dosage: 1 DF, QD (1?0?0)
     Route: 065
     Dates: start: 20171218, end: 20180721
  2. LOSARTAN 1A PHARMA 50 MG ? FILMTABLETTEN [Suspect]
     Active Substance: LOSARTAN POTASSIUM
     Indication: HYPERTENSION
     Dosage: 50 MG
     Route: 065
     Dates: start: 20180907, end: 20180919
  3. VALOSARTAN [Concomitant]
     Active Substance: VALSARTAN
     Dosage: 0.5 UNK, 160/12.5
     Route: 065
     Dates: start: 20160606, end: 20161009
  4. VALOSARTAN [Concomitant]
     Active Substance: VALSARTAN
     Dosage: 1 UNK, 80/12.5
     Route: 065
     Dates: start: 20171218, end: 20180315
  5. DELIX (RAMIPRIL) [Concomitant]
     Active Substance: RAMIPRIL
     Indication: PRODUCT USED FOR UNKNOWN INDICATION
     Dosage: 1 DF, 5, N2?45
     Route: 065
     Dates: start: 20180925, end: 20181015
  6. VALOSARTAN [Concomitant]
     Active Substance: VALSARTAN
     Dosage: 0.5 UNK, 160/12.5
     Route: 065
     Dates: start: 20161010, end: 20170215
  7. VALSACOR [Concomitant]
     Active Substance: VALSARTAN
     Dosage: 1 DF, 80/12.5, N3?98
     Route: 065
     Dates: start: 20181206, end: 20190114
  8. VALSACOR [Concomitant]
     Active Substance: VALSARTAN
     Dosage: 1 DF, 80, N3?98
     Route: 065
     Dates: start: 20181103, end: 20181114
  9. DIOVAN [Suspect]
     Active Substance: VALSARTAN
     Indication: HYPERTENSION
     Dosage: 80 MG, UNKNOWN
     Route: 065
     Dates: start: 20190115
  10. DEKRISTOL [Concomitant]
     Active Substance: CHOLECALCIFEROL
     Indication: PRODUCT USED FOR UNKNOWN INDICATION
     Dosage: UNK
     Route: 065
  11. LOSARTAN COMP CT [Concomitant]
     Active Substance: HYDROCHLOROTHIAZIDE\LOSARTAN POTASSIUM
     Indication: PRODUCT USED FOR UNKNOWN INDICATION
     Dosage: 1 DF, 50/12.5, N3?98
     Route: 065
     Dates: start: 20180721, end: 20180906
  12. VALSACOR [Concomitant]
     Active Substance: VALSARTAN
     Indication: PRODUCT USED FOR UNKNOWN INDICATION
     Dosage: 1 DF, 80/12.5, N3?98
     Route: 065
     Dates: start: 20181031, end: 20181102
  13. VALSACOR [Concomitant]
     Active Substance: VALSARTAN
     Dosage: 1 DF, 80, N3?98
     Route: 065
     Dates: start: 20181206, end: 20190114
  14. VALOSARTAN [Concomitant]
     Active Substance: VALSARTAN
     Indication: PRODUCT USED FOR UNKNOWN INDICATION
     Dosage: 1 DF, 80/12.5
     Route: 065
     Dates: start: 20151126, end: 20160127
  15. VALOSARTAN [Concomitant]
     Active Substance: VALSARTAN
     Dosage: 0.5 DF, 160/12.5
     Route: 065
     Dates: start: 20160128, end: 20160605
  16. BIPRETERAX [Concomitant]
     Active Substance: INDAPAMIDE\PERINDOPRIL
     Indication: PRODUCT USED FOR UNKNOWN INDICATION
     Dosage: 1 DF, 5/1.25, N1?30
     Route: 065
     Dates: start: 20181016, end: 20181029
  17. VALSARTAN HEXAL [Suspect]
     Active Substance: VALSARTAN
     Indication: HYPERTENSION
     Dosage: 0.5 DF, QD (0.5?0?0)
     Route: 065
     Dates: start: 20160128, end: 20171217
  18. ALLOPURINOL. [Concomitant]
     Active Substance: ALLOPURINOL
     Indication: PRODUCT USED FOR UNKNOWN INDICATION
     Dosage: UNK
     Route: 065
     Dates: start: 20140924, end: 20171029
  19. VALOSARTAN [Concomitant]
     Active Substance: VALSARTAN
     Dosage: 1 UNK, 80/12.5
     Route: 065
     Dates: start: 20170914, end: 20171217
  20. EXFORGE [Concomitant]
     Active Substance: AMLODIPINE BESYLATE\VALSARTAN
     Indication: PRODUCT USED FOR UNKNOWN INDICATION
     Dosage: 0.5 DF, 5/160, N3?98
     Route: 065
     Dates: start: 20181128, end: 20181205
  21. AMLODIPIN [Suspect]
     Active Substance: AMLODIPINE BESYLATE
     Indication: HYPERTENSION
     Dosage: UNK
     Route: 065
     Dates: start: 20181115, end: 20181127
  22. VALOSARTAN [Concomitant]
     Active Substance: VALSARTAN
     Dosage: 1 UNK, 80/12.5, N3?98
     Route: 065
     Dates: start: 20180516, end: 20180719
  23. DEKRISTOL [Concomitant]
     Active Substance: CHOLECALCIFEROL
     Dosage: UNK
     Route: 065
     Dates: start: 20141230
  24. VALOSARTAN [Concomitant]
     Active Substance: VALSARTAN
     Dosage: 1 UNK, 80/12.5
     Route: 065
     Dates: start: 20170619, end: 20170913
  25. VALOSARTAN [Concomitant]
     Active Substance: VALSARTAN
     Dosage: 1 UNK, 80/12.5
     Route: 065
     Dates: start: 20180316, end: 20180515

REACTIONS (23)
  - Apathy [Not Recovered/Not Resolved]
  - Somnolence [Recovered/Resolved]
  - Fear of death [Not Recovered/Not Resolved]
  - Nervousness [Not Recovered/Not Resolved]
  - Pathological doubt [Not Recovered/Not Resolved]
  - Secretion discharge [Unknown]
  - Lipase increased [Unknown]
  - Emotional distress [Not Recovered/Not Resolved]
  - Pain [Unknown]
  - Chest discomfort [Unknown]
  - Anxiety [Not Recovered/Not Resolved]
  - Restlessness [Not Recovered/Not Resolved]
  - Thinking abnormal [Not Recovered/Not Resolved]
  - Anger [Not Recovered/Not Resolved]
  - Heart rate increased [Unknown]
  - Feeling hot [Unknown]
  - Myalgia [Recovered/Resolved]
  - Altered state of consciousness [Unknown]
  - Throat clearing [Unknown]
  - Blood creatinine increased [Unknown]
  - Renal impairment [Unknown]
  - Mental disorder [Not Recovered/Not Resolved]
  - Fear of disease [Not Recovered/Not Resolved]

NARRATIVE: CASE EVENT DATE: 201601
